FAERS Safety Report 26110910 (Version 1)
Quarter: 2025Q4

REPORT INFORMATION
  Report Type: Spontaneous
  Country: JP (occurrence: JP)
  Receive Date: 20251202
  Receipt Date: 20251202
  Transmission Date: 20260118
  Serious: Yes (Life-Threatening, Hospitalization, Other)
  Sender: PHARMOBEDIENT CONSULTING, LLC
  Company Number: JP-Pharmobedient-000570

PATIENT
  Age: 15 Year
  Sex: Female

DRUGS (3)
  1. GUANFACINE HYDROCHLORIDE [Suspect]
     Active Substance: GUANFACINE HYDROCHLORIDE
     Indication: Product used for unknown indication
     Dosage: MAXIMUM PRESCRIPTION DOSE WAS 6 MG/D, OVERDOSED 3 TIMES
  2. GUANFACINE HYDROCHLORIDE [Suspect]
     Active Substance: GUANFACINE HYDROCHLORIDE
     Indication: Product used for unknown indication
     Dosage: MAXIMUM PRESCRIPTION DOSE WAS 6 MG/D, OVERDOSED 3 TIMES
  3. GUANFACINE HYDROCHLORIDE [Suspect]
     Active Substance: GUANFACINE HYDROCHLORIDE
     Indication: Product used for unknown indication
     Dosage: MAXIMUM PRESCRIPTION DOSE WAS 6 MG/D, OVERDOSED 3 TIMES

REACTIONS (4)
  - Overdose [Unknown]
  - Stress cardiomyopathy [Recovering/Resolving]
  - Respiratory failure [Recovering/Resolving]
  - Electrocardiogram QT prolonged [Recovering/Resolving]
